FAERS Safety Report 7049530-7 (Version None)
Quarter: 2010Q4

REPORT INFORMATION
  Report Type: 
  Country: None (occurrence: None)
  Receive Date: 20101018
  Receipt Date: 20101006
  Transmission Date: 20110411
  Serious: Yes (Other)
  Sender: FDA-Public Use
  Company Number: BR-PFIZER INC-2010126698

PATIENT
  Age: 42 Year
  Sex: Male
  Weight: 82 kg

DRUGS (1)
  1. LYRICA [Suspect]
     Indication: NERVE INJURY
     Dosage: UNK
     Route: 048

REACTIONS (2)
  - KERATOCONUS [None]
  - VISUAL IMPAIRMENT [None]
